FAERS Safety Report 25554139 (Version 1)
Quarter: 2025Q3

REPORT INFORMATION
  Report Type: Spontaneous
  Country: US (occurrence: US)
  Receive Date: 20250715
  Receipt Date: 20250715
  Transmission Date: 20251021
  Serious: No
  Sender: CALLIDITAS THERAPEUTICS AB
  Company Number: US-Calliditas-2025CAL00182

PATIENT
  Age: 38 Year
  Sex: Female

DRUGS (7)
  1. TARPEYO [Suspect]
     Active Substance: BUDESONIDE
     Indication: IgA nephropathy
     Route: 048
     Dates: start: 20241129
  2. TELMISARTAN [Concomitant]
     Active Substance: TELMISARTAN
  3. FISH OIL [Concomitant]
     Active Substance: FISH OIL
  4. GABAPENTIN [Concomitant]
     Active Substance: GABAPENTIN
  5. COREG [Concomitant]
     Active Substance: CARVEDILOL
  6. FARXIGA [Concomitant]
     Active Substance: DAPAGLIFLOZIN PROPANEDIOL
  7. CYMBALTA [Concomitant]
     Active Substance: DULOXETINE HYDROCHLORIDE

REACTIONS (4)
  - Heavy menstrual bleeding [Unknown]
  - Heavy menstrual bleeding [Recovering/Resolving]
  - Weight increased [Unknown]
  - Swelling face [Not Recovered/Not Resolved]

NARRATIVE: CASE EVENT DATE: 20250101
